FAERS Safety Report 6370950-8 (Version None)
Quarter: 2009Q3

REPORT INFORMATION
  Report Type: 
  Country: None (occurrence: None)
  Receive Date: 20090923
  Receipt Date: 20070913
  Transmission Date: 20100115
  Serious: Yes (Other)
  Sender: FDA-Public Use
  Company Number: US-ASTRAZENECA-2006UW23604

PATIENT
  Age: 670 Month
  Sex: Female
  Weight: 77.1 kg

DRUGS (7)
  1. SEROQUEL [Suspect]
     Indication: DEPRESSION
     Route: 048
     Dates: start: 20030403, end: 20050314
  2. SEROQUEL [Suspect]
     Indication: BIPOLAR DISORDER
     Route: 048
     Dates: start: 20030403, end: 20050314
  3. SEROQUEL [Suspect]
     Dosage: STRENGTH - 25 MG AND 100 MG, DOSE - 25 MG TO 75 MG DAILY
     Route: 048
     Dates: start: 20030403, end: 20050314
  4. SEROQUEL [Suspect]
     Dosage: STRENGTH - 25 MG AND 100 MG, DOSE - 25 MG TO 75 MG DAILY
     Route: 048
     Dates: start: 20030403, end: 20050314
  5. LAMICTAL [Concomitant]
     Dates: start: 20050622
  6. WELLBUTRIN [Concomitant]
     Dosage: 300 MG TO 400 MG DAILY
     Dates: start: 20020922
  7. NEXIUM [Concomitant]
     Indication: GASTROOESOPHAGEAL REFLUX DISEASE
     Dates: start: 20030324

REACTIONS (2)
  - DIABETES MELLITUS [None]
  - PANCREATITIS [None]
